FAERS Safety Report 7534605-6 (Version None)
Quarter: 2011Q2

REPORT INFORMATION
  Report Type: 
  Country: None (occurrence: None)
  Receive Date: 20110609
  Receipt Date: 20100202
  Transmission Date: 20111010
  Serious: Yes (Death, Other)
  Sender: FDA-Public Use
  Company Number: PHHY2009JP08735

PATIENT
  Sex: Female
  Weight: 32 kg

DRUGS (10)
  1. SULFAMETHOXAZOLE [Concomitant]
     Indication: PROPHYLAXIS
     Dosage: 2 DF
     Route: 048
     Dates: end: 20080927
  2. EXJADE [Suspect]
     Indication: MULTIPLE MYELOMA
  3. DEXAMETHASONE SODIUM PHOSPHATE [Concomitant]
     Dosage: 40 MG, UNK
     Route: 042
     Dates: start: 20080915, end: 20080926
  4. EXJADE [Suspect]
     Indication: IRON OVERLOAD
     Dosage: 625 MG, UNK
     Route: 048
     Dates: start: 20080916, end: 20080927
  5. RED BLOOD CELLS, CONCENTRATED [Concomitant]
     Dosage: 2 U, UNK
     Dates: start: 20080916, end: 20081006
  6. TRANSAMIN [Concomitant]
     Dosage: 500 MG, UNK
     Route: 042
     Dates: start: 20080925
  7. CALCIUM CARBONATE [Concomitant]
     Dosage: 3000 MG, UNK
     Route: 048
     Dates: start: 20070809, end: 20080927
  8. RABEPRAZOLE SODIUM [Concomitant]
     Dosage: 10 MG, UNK
     Route: 048
     Dates: start: 20080728, end: 20080927
  9. FLUCONAZOLE [Concomitant]
     Indication: PROPHYLAXIS
     Dosage: 100 DF
     Route: 048
     Dates: end: 20080927
  10. PLATELETS [Concomitant]
     Dosage: 10 U, UNK
     Dates: start: 20080919, end: 20081003

REACTIONS (10)
  - ASPARTATE AMINOTRANSFERASE INCREASED [None]
  - SEPTIC SHOCK [None]
  - METASTASES TO LIVER [None]
  - SEPSIS [None]
  - LIVER DISORDER [None]
  - GAMMA-GLUTAMYLTRANSFERASE INCREASED [None]
  - ALANINE AMINOTRANSFERASE INCREASED [None]
  - RENAL DISORDER [None]
  - BLOOD CREATININE INCREASED [None]
  - BLOOD UREA INCREASED [None]
